FAERS Safety Report 8523641-9 (Version None)
Quarter: 2012Q3

REPORT INFORMATION
  Report Type: 
  Country: None (occurrence: None)
  Receive Date: 20120720
  Receipt Date: 20120710
  Transmission Date: 20120928
  Serious: Yes (Death, Hospitalization, Other)
  Sender: FDA-Public Use
  Company Number: JP-BAYER-2011-123220

PATIENT
  Age: 58 Year
  Sex: Male
  Weight: 60 kg

DRUGS (11)
  1. NEXAVAR [Suspect]
     Dosage: 400MG DAILY
     Route: 048
     Dates: start: 20110606, end: 20110630
  2. DIOVAN [Concomitant]
     Indication: HYPERTENSION
     Dosage: DAILY DOSE 80 MG
     Route: 048
     Dates: start: 20110403
  3. NEXAVAR [Suspect]
     Dosage: 200 MG DAILY
     Route: 048
     Dates: start: 20110525, end: 20110605
  4. TAMSULOSIN HCL [Concomitant]
     Indication: BENIGN PROSTATIC HYPERPLASIA
     Dosage: DAILY DOSE .2 MG
     Route: 048
     Dates: start: 20080828
  5. CARVEDILOL [Concomitant]
     Indication: HYPERTENSION
     Dosage: DAILY DOSE 10 MG
     Route: 048
     Dates: start: 20110421
  6. BARACLUDE [Concomitant]
     Indication: HEPATITIS B
     Dosage: DAILY DOSE .5 MG
     Route: 048
     Dates: start: 20080416
  7. OMEPRAZOLE [Concomitant]
     Indication: GASTRITIS
     Dosage: DAILY DOSE 20 MG
     Route: 048
     Dates: start: 20080424, end: 20110523
  8. URSO 250 [Concomitant]
     Indication: HEPATITIS B
     Dosage: DAILY DOSE 900 MG
     Route: 048
     Dates: start: 20080423
  9. NEXAVAR [Suspect]
     Indication: HEPATIC NEOPLASM MALIGNANT
     Dosage: 800 MG DAILY
     Route: 048
     Dates: start: 20110328, end: 20110520
  10. DAIKENTYUTO [Concomitant]
     Indication: ABDOMINAL DISTENSION
     Dosage: DAILY DOSE 7.5 G
     Route: 048
     Dates: start: 20080529
  11. RABEPRAZOLE SODIUM [Concomitant]
     Dosage: DAILY DOSE 40 MG
     Route: 048
     Dates: start: 20110523

REACTIONS (3)
  - FAECES DISCOLOURED [None]
  - HEPATIC NEOPLASM MALIGNANT [None]
  - DUODENAL ULCER HAEMORRHAGE [None]
